FAERS Safety Report 11492981 (Version 2)
Quarter: 2015Q4

REPORT INFORMATION
  Report Type: Spontaneous
  Country: JP (occurrence: JP)
  Receive Date: 20150911
  Receipt Date: 20151117
  Transmission Date: 20160304
  Serious: Yes (Other)
  Sender: FDA-Public Use
  Company Number: JP-PFIZER INC-2015291133

PATIENT
  Age: 16 Year
  Sex: Female
  Weight: 33 kg

DRUGS (6)
  1. BUSULFAN [Suspect]
     Active Substance: BUSULFAN
  2. ETOPOSIDE. [Suspect]
     Active Substance: ETOPOSIDE
  3. IDAMYCIN [Suspect]
     Active Substance: IDARUBICIN HYDROCHLORIDE
     Indication: LYMPHOMA
  4. MELPHALAN [Suspect]
     Active Substance: MELPHALAN
  5. CYTARABINE. [Suspect]
     Active Substance: CYTARABINE
  6. MITOXANTRONE HCL [Suspect]
     Active Substance: MITOXANTRONE HYDROCHLORIDE

REACTIONS (2)
  - Uterine atrophy [Not Recovered/Not Resolved]
  - Product use issue [Unknown]
